FAERS Safety Report 17165180 (Version 1)
Quarter: 2019Q4

REPORT INFORMATION
  Report Type: Spontaneous
  Country: FR (occurrence: FR)
  Receive Date: 20191217
  Receipt Date: 20191217
  Transmission Date: 20200122
  Serious: Yes (Hospitalization, Other)
  Sender: FDA-Public Use
  Company Number: FR-MYLANLABS-2019M1123259

PATIENT
  Age: 72 Year
  Sex: Male

DRUGS (4)
  1. DOXYCYCLINE. [Suspect]
     Active Substance: DOXYCYCLINE
     Indication: CARDIAC VALVE VEGETATION
     Dosage: UNK
  2. AMOXYCILLIN                        /00249601/ [Suspect]
     Active Substance: AMOXICILLIN
     Indication: CARDIAC VALVE VEGETATION
     Dosage: 12 G, DAILY
     Route: 065
  3. DOXYCYCLINE. [Suspect]
     Active Substance: DOXYCYCLINE
     Dosage: 200 MILLIGRAM, QD
     Route: 065
  4. GENTAMYCIN                         /00047101/ [Suspect]
     Active Substance: GENTAMICIN
     Indication: CARDIAC VALVE VEGETATION
     Dosage: 240 MG, DAILY
     Route: 065

REACTIONS (5)
  - Brain abscess [Recovered/Resolved]
  - Embolic stroke [Unknown]
  - Product use in unapproved indication [Unknown]
  - Off label use [Unknown]
  - Cardiac valve fibroelastoma [Unknown]
